FAERS Safety Report 11855175 (Version 1)
Quarter: 2015Q4

REPORT INFORMATION
  Report Type: Spontaneous
  Country: TR (occurrence: TR)
  Receive Date: 20151221
  Receipt Date: 20151221
  Transmission Date: 20160305
  Serious: Yes (Hospitalization, Other)
  Sender: FDA-Public Use
  Company Number: TR-WATSON-2015-14023

PATIENT
  Age: 30 Year
  Sex: Female

DRUGS (1)
  1. INDOMETACIN [Suspect]
     Active Substance: INDOMETHACIN
     Indication: MIGRAINE
     Dosage: 200 MG, DAILY
     Route: 054

REACTIONS (2)
  - Self-medication [Unknown]
  - Colitis [Recovered/Resolved]
